FAERS Safety Report 6328858-X (Version None)
Quarter: 2009Q3

REPORT INFORMATION
  Report Type: 
  Country: None (occurrence: None)
  Receive Date: 20090826
  Receipt Date: 20090824
  Transmission Date: 20100115
  Serious: No
  Sender: FDA-Public Use
  Company Number: US-B.I. PHARMACEUTICALS,INC./RIDGEFIELD-2009-BP-09978BP

PATIENT
  Sex: Male

DRUGS (3)
  1. ZANTAC 150 [Suspect]
     Indication: HAEMOPTYSIS
     Dosage: 150 MG
     Route: 048
     Dates: start: 20090707
  2. ZANTAC 150 [Suspect]
     Indication: GASTROOESOPHAGEAL REFLUX DISEASE
  3. PROTONIX [Concomitant]
     Indication: HAEMOPTYSIS
     Route: 048
     Dates: start: 20090707

REACTIONS (2)
  - HAEMOPTYSIS [None]
  - INCORRECT DRUG ADMINISTRATION DURATION [None]
